FAERS Safety Report 24603511 (Version 1)
Quarter: 2024Q4

REPORT INFORMATION
  Report Type: Spontaneous
  Country: US (occurrence: US)
  Receive Date: 20241111
  Receipt Date: 20241111
  Transmission Date: 20250114
  Serious: No
  Sender: PERRIGO
  Company Number: US-PERRIGO-24US004197

PATIENT

DRUGS (1)
  1. NICOTINE POLACRILEX [Suspect]
     Active Substance: NICOTINE
     Indication: Product used for unknown indication
     Dosage: 4 MG, TWICE WITHIN 4 HOURS
     Route: 002

REACTIONS (2)
  - Foaming at mouth [Unknown]
  - Abdominal pain upper [Unknown]
